FAERS Safety Report 5475111-2 (Version None)
Quarter: 2007Q4

REPORT INFORMATION
  Report Type: 
  Country: None (occurrence: None)
  Receive Date: 20071002
  Receipt Date: 20070927
  Transmission Date: 20080405
  Serious: Yes (Disabling)
  Sender: FDA-Public Use
  Company Number: US-BOEHRINGER INGELHEIM PHARMACEUTICALS, INC.-2007-BP-21845BP

PATIENT

DRUGS (1)
  1. MIRAPEX [Suspect]
     Indication: RESTLESSNESS

REACTIONS (5)
  - ANXIETY [None]
  - DEPRESSION [None]
  - DISABILITY [None]
  - FEELING ABNORMAL [None]
  - PATHOLOGICAL GAMBLING [None]
